FAERS Safety Report 10726787 (Version 1)
Quarter: 2015Q1

REPORT INFORMATION
  Report Type: Report from Study
  Country: US (occurrence: US)
  Receive Date: 20150121
  Receipt Date: 20150121
  Transmission Date: 20150721
  Serious: Yes (Hospitalization, Other)
  Sender: FDA-Public Use
  Company Number: US-SA-2015SA005702

PATIENT
  Sex: Male

DRUGS (2)
  1. LANTUS SOLOSTAR [Suspect]
     Active Substance: INSULIN GLARGINE
     Dosage: DOSE:18 UNIT(S)
     Route: 065
     Dates: end: 20150113
  2. SOLOSTAR [Concomitant]
     Active Substance: DEVICE
     Dates: end: 20150113

REACTIONS (5)
  - Hospitalisation [Recovered/Resolved]
  - Fall [Unknown]
  - Cardiac operation [Unknown]
  - Foot operation [Unknown]
  - Muscle spasms [Unknown]

NARRATIVE: CASE EVENT DATE: 2014
